FAERS Safety Report 8401711-3 (Version None)
Quarter: 2012Q2

REPORT INFORMATION
  Report Type: 
  Country: None (occurrence: None)
  Receive Date: 20120529
  Receipt Date: 20091117
  Transmission Date: 20120825
  Serious: Yes (Hospitalization)
  Sender: FDA-Public Use
  Company Number: 008168

PATIENT
  Age: 59 Year
  Sex: Female

DRUGS (2)
  1. ASPIRIN [Suspect]
     Indication: THROMBOSIS PROPHYLAXIS
     Dosage: 100 MG, DAILY DOSE, ORAL
     Route: 048
  2. PLATAAL (CILOSTAZOL) TABLET [Suspect]
     Indication: THROMBOSIS PROPHYLAXIS
     Dosage: 100 MG, DAILY DOSE, ORAL
     Route: 048

REACTIONS (10)
  - DEVICE FAILURE [None]
  - SOMNOLENCE [None]
  - ANEURYSM [None]
  - DIPLOPIA [None]
  - DYSPHAGIA [None]
  - DYSARTHRIA [None]
  - PNEUMONIA ASPIRATION [None]
  - MUSCULAR WEAKNESS [None]
  - MEDICAL DEVICE COMPLICATION [None]
  - BRAIN COMPRESSION [None]
